FAERS Safety Report 9840570 (Version 1)
Quarter: 2013Q4

REPORT INFORMATION
  Report Type: Spontaneous
  Country: ES (occurrence: None)
  Receive Date: 20131211
  Receipt Date: 20131211
  Transmission Date: 20140711
  Serious: Yes (Hospitalization)
  Sender: FDA-Public Use
  Company Number: SPV1-2011-00974

PATIENT
  Age: 11 Month
  Sex: Male
  Weight: 8.3 kg

DRUGS (4)
  1. ELAPRASE (IDURSULFASE) CONCENTRATE FOR SOLUTION FOR INFUSION [Suspect]
     Indication: MUCOPOLYSACCHARIDOSIS II
     Dosage: 0.5 MG/KG, 1X/WEEK, IV DRIP
     Route: 041
  2. PARACETAMOL (PARACETAMOL) [Concomitant]
  3. ANTIHISTAMINICO (CHLORPHENAMINE) [Concomitant]
  4. N/A [Concomitant]

REACTIONS (2)
  - Pyrexia [None]
  - Infusion related reaction [None]
